FAERS Safety Report 18701904 (Version 1)
Quarter: 2021Q1

REPORT INFORMATION
  Report Type: Spontaneous
  Country: US (occurrence: US)
  Receive Date: 20210105
  Receipt Date: 20210105
  Transmission Date: 20210419
  Serious: Yes (Death, Other)
  Sender: FDA-Public Use
  Company Number: US-BAYER-2020-287414

PATIENT
  Age: 68 Year
  Sex: Male

DRUGS (2)
  1. ACETYLSALICYLIC ACID [Suspect]
     Active Substance: ASPIRIN
  2. PREDNISONE. [Suspect]
     Active Substance: PREDNISONE

REACTIONS (4)
  - Labelled drug-drug interaction medication error [None]
  - Upper gastrointestinal haemorrhage [Fatal]
  - Haemoperitoneum [Fatal]
  - Shock haemorrhagic [Fatal]
